FAERS Safety Report 5306126-2 (Version None)
Quarter: 2007Q2

REPORT INFORMATION
  Report Type: 
  Country: None (occurrence: None)
  Receive Date: 20070424
  Receipt Date: 20050411
  Transmission Date: 20071010
  Serious: Yes (Hospitalization)
  Sender: FDA-Public Use
  Company Number: FR-BRISTOL-MYERS SQUIBB COMPANY-12930541

PATIENT
  Age: 39 Year
  Sex: Male
  Weight: 60 kg

DRUGS (10)
  1. REVIA [Suspect]
     Indication: ALCOHOLIC PSYCHOSIS
     Route: 048
     Dates: start: 20041220, end: 20050114
  2. QUESTRAN [Suspect]
     Indication: GALLBLADDER DISORDER
     Route: 048
     Dates: start: 20041220, end: 20050114
  3. VIDEX [Suspect]
     Route: 048
     Dates: start: 20040609, end: 20041221
  4. VIRAMUNE [Suspect]
     Dates: start: 20000815, end: 20041221
  5. ZIAGEN [Suspect]
     Dates: start: 20000815, end: 20041221
  6. DITROPAN [Suspect]
     Indication: URINARY INCONTINENCE
  7. PERIKABIVEN [Concomitant]
  8. ALUMINUM HYDROXIDE AND MAGNESIUM TRISILICATE [Concomitant]
  9. ATARAX [Concomitant]
  10. TRANXENE [Concomitant]

REACTIONS (1)
  - RENAL FAILURE ACUTE [None]
